FAERS Safety Report 13859979 (Version 1)
Quarter: 2017Q3

REPORT INFORMATION
  Report Type: Report from Study
  Country: US (occurrence: US)
  Receive Date: 20170811
  Receipt Date: 20170811
  Transmission Date: 20171127
  Serious: Yes (Other)
  Sender: FDA-Public Use
  Company Number: PHEH2017US024291

PATIENT
  Sex: Female

DRUGS (1)
  1. FEMARA [Suspect]
     Active Substance: LETROZOLE
     Indication: PRODUCT USED FOR UNKNOWN INDICATION
     Dosage: 2.5 MG, QD
     Route: 065

REACTIONS (13)
  - Brain injury [Unknown]
  - Aphasia [Unknown]
  - Hair growth abnormal [Unknown]
  - Cognitive disorder [Unknown]
  - Pain [Unknown]
  - Feeling abnormal [Unknown]
  - Memory impairment [Unknown]
  - Reading disorder [Unknown]
  - Gait inability [Unknown]
  - Balance disorder [Unknown]
  - Confusional state [Unknown]
  - Dysphagia [Unknown]
  - Amnesia [Unknown]
